FAERS Safety Report 20980237 (Version 3)
Quarter: 2022Q3

REPORT INFORMATION
  Report Type: Spontaneous
  Country: AU (occurrence: None)
  Receive Date: 20220620
  Receipt Date: 20220717
  Transmission Date: 20221027
  Serious: Yes (Other)
  Sender: FDA-Public Use
  Company Number: AU-ROCHE-2803470

PATIENT
  Sex: Female
  Weight: 59 kg

DRUGS (13)
  1. RITUXIMAB [Suspect]
     Active Substance: RITUXIMAB
     Indication: Marginal zone lymphoma
     Dosage: FOR THE 1ST LINE SYSTEMIC TREATMENT, R-BENDAMUSTINE X 1 CYCLE
     Route: 065
     Dates: start: 20160629, end: 20161001
  2. RITUXIMAB [Suspect]
     Active Substance: RITUXIMAB
     Dosage: FOR THE 3RD LINE SYSTEMIC TREATMENT, R-CHOP, COMPLETE REMISSION
     Route: 065
     Dates: start: 20190617, end: 20190930
  3. RITUXIMAB [Suspect]
     Active Substance: RITUXIMAB
     Dosage: FOR THE 4TH LINE SYSTEMIC TREATMENT, R-ICE
     Route: 065
     Dates: start: 20210222, end: 20210222
  4. VENETOCLAX [Suspect]
     Active Substance: VENETOCLAX
     Indication: Marginal zone lymphoma
     Dosage: FOR THE 2ND LINE SYSTEMIC TREATMENT, IBRUTINIB PLUS VENETOCLAX, PARTIAL REMISSION
     Route: 065
     Dates: start: 20180926, end: 20190410
  5. CYCLOPHOSPHAMIDE [Suspect]
     Active Substance: CYCLOPHOSPHAMIDE
     Indication: Marginal zone lymphoma
     Dosage: FOR THE 3RD LINE SYSTEMIC TREATMENT, R-CHOP, COMPLETE REMISSION
     Route: 065
     Dates: start: 20190617, end: 20190930
  6. PREDNISONE [Suspect]
     Active Substance: PREDNISONE
     Indication: Marginal zone lymphoma
     Dosage: FOR THE 3RD LINE SYSTEMIC TREATMENT, R-CHOP, COMPLETE REMISSION
     Route: 065
     Dates: start: 20190617, end: 20190930
  7. DOXORUBICIN [Suspect]
     Active Substance: DOXORUBICIN
     Indication: Marginal zone lymphoma
     Dosage: FOR THE 3RD LINE SYSTEMIC TREATMENT, R-CHOP, COMPLETE REMISSION
     Route: 065
     Dates: start: 20190617, end: 20190930
  8. VINCRISTINE [Suspect]
     Active Substance: VINCRISTINE
     Indication: Marginal zone lymphoma
     Dosage: FOR THE 3RD LINE SYSTEMIC TREATMENT, R-CHOP, COMPLETE REMISSION
     Route: 065
     Dates: start: 20190617, end: 20190930
  9. IFOSFAMIDE [Suspect]
     Active Substance: IFOSFAMIDE
     Indication: Marginal zone lymphoma
     Dosage: FOR THE 4TH LINE SYSTEMIC TREATMENT, R-ICE
     Route: 065
     Dates: start: 20210222, end: 20210222
  10. CARBOPLATIN [Suspect]
     Active Substance: CARBOPLATIN
     Indication: Marginal zone lymphoma
     Dosage: FOR THE 4TH LINE SYSTEMIC TREATMENT, R-ICE
     Route: 065
     Dates: start: 20210222, end: 20210222
  11. ETOPOSIDE PHOSPHATE [Suspect]
     Active Substance: ETOPOSIDE PHOSPHATE
     Indication: Marginal zone lymphoma
     Dosage: FOR THE 4TH LINE SYSTEMIC TREATMENT, R-ICE
     Route: 065
     Dates: start: 20210222, end: 20210222
  12. BENDAMUSTINE [Suspect]
     Active Substance: BENDAMUSTINE
     Indication: Marginal zone lymphoma
     Dosage: FOR THE 1ST LINE SYSTEMIC TREATMENT, R-BENDAMUSTINE X 1 CYCLE, COMPLETE REMISSION
     Route: 065
     Dates: start: 20160629, end: 20161001
  13. IBRUTINIB [Suspect]
     Active Substance: IBRUTINIB
     Indication: Marginal zone lymphoma
     Dosage: FOR THE 2ND LINE SYSTEMIC TREATMENT, IBRUTINIB PLUS VENETOCLAX, PARTIAL REMISSION
     Route: 065
     Dates: start: 20180926, end: 20190410

REACTIONS (2)
  - Rash [Unknown]
  - Marginal zone lymphoma [Unknown]
